FAERS Safety Report 4689037-5 (Version None)
Quarter: 2005Q2

REPORT INFORMATION
  Report Type: 
  Country: None (occurrence: None)
  Receive Date: 20050608
  Receipt Date: 20040810
  Transmission Date: 20051028
  Serious: No
  Sender: FDA-Public Use
  Company Number: 2004-BP-06144BP

PATIENT
  Age: 61 Year
  Sex: Male
  Weight: 132.9 kg

DRUGS (11)
  1. SPIRIVA [Suspect]
     Indication: CHRONIC OBSTRUCTIVE PULMONARY DISEASE
     Dosage: 18 MCG (18 MCG), IH
     Route: 055
     Dates: start: 20040707
  2. SPIRIVA [Suspect]
     Indication: COUGH
     Dosage: 18 MCG (18 MCG), IH
     Route: 055
     Dates: start: 20040707
  3. SPIRIVA [Suspect]
     Indication: CHRONIC OBSTRUCTIVE PULMONARY DISEASE
     Dosage: 18 MCG (18 MCG), IH
     Route: 055
     Dates: start: 20040707
  4. SPIRIVA [Suspect]
     Indication: COUGH
     Dosage: 18 MCG (18 MCG), IH
     Route: 055
     Dates: start: 20040707
  5. ADVAIR DISKUS 100/50 [Concomitant]
  6. PAXIL [Concomitant]
  7. LIPITOR [Concomitant]
  8. CELEBREX [Concomitant]
  9. INSULIN (INSULIN) [Concomitant]
  10. PROTONIX [Concomitant]
  11. SINGULAIR [Concomitant]

REACTIONS (1)
  - COUGH [None]
